FAERS Safety Report 5424378-5 (Version None)
Quarter: 2007Q3

REPORT INFORMATION
  Report Type: 
  Country: None (occurrence: None)
  Receive Date: 20070727
  Receipt Date: 20070511
  Transmission Date: 20080115
  Serious: No
  Sender: FDA-Public Use
  Company Number: 263861

PATIENT
  Age: 48 Year
  Sex: Male

DRUGS (4)
  1. LEVEMIR [Suspect]
     Indication: INSULIN-REQUIRING TYPE II DIABETES MELLITUS
     Dosage: 10 U, QDAM, SUBCUTANEOUS
     Route: 058
     Dates: start: 20070504
  2. METFORMIN HCL [Concomitant]
  3. AMAREL (GLIMEPRIDE) [Concomitant]
  4. STARLIX [Concomitant]

REACTIONS (2)
  - BLOOD GLUCOSE INCREASED [None]
  - DIARRHOEA [None]
